FAERS Safety Report 9149618 (Version 3)
Quarter: 2013Q2

REPORT INFORMATION
  Report Type: Spontaneous
  Country: FR (occurrence: FR)
  Receive Date: 20130308
  Receipt Date: 20130413
  Transmission Date: 20140414
  Serious: Yes (Death, Hospitalization)
  Sender: FDA-Public Use
  Company Number: FR-B.I. PHARMACEUTICALS,INC./RIDGEFIELD-2013-FF-00674FF

PATIENT
  Age: 95 Year
  Sex: Male
  Weight: 65 kg

DRUGS (10)
  1. PRADAXA [Suspect]
     Indication: ATRIAL FIBRILLATION
     Dosage: 220 MG
     Route: 048
     Dates: start: 20120907, end: 20130203
  2. TRIATEC [Concomitant]
     Indication: HYPERTENSION
     Dosage: 1.25 MG
  3. LASILIX [Concomitant]
  4. DUPHALAC [Concomitant]
  5. DOLIPRANE [Concomitant]
     Dosage: 1000 MG
     Dates: start: 2000
  6. LEXOMIL [Concomitant]
     Dosage: 1/4 TABLET IN THE EVENING
  7. ORELOX [Concomitant]
     Indication: BRONCHITIS
     Dosage: 200 MG
     Dates: start: 20130125
  8. SOLUPRED [Concomitant]
     Dosage: 60 MG
     Dates: start: 20130125
  9. AZYTER [Concomitant]
     Indication: CONJUNCTIVITIS
     Dates: start: 20130125
  10. THERALENE [Concomitant]
     Dosage: 5 MG
     Dates: start: 20130125

REACTIONS (2)
  - Haemorrhagic stroke [Fatal]
  - Hemiplegia [Unknown]
